FAERS Safety Report 12926899 (Version 3)
Quarter: 2017Q2

REPORT INFORMATION
  Report Type: Spontaneous
  Country: US (occurrence: US)
  Receive Date: 20161109
  Receipt Date: 20170427
  Transmission Date: 20170830
  Serious: Yes (Death, Hospitalization, Other)
  Sender: FDA-Public Use
  Company Number: US-009507513-1611USA004119

PATIENT
  Sex: Male

DRUGS (3)
  1. JANUVIA [Suspect]
     Active Substance: SITAGLIPTIN PHOSPHATE
     Indication: TYPE 2 DIABETES MELLITUS
     Dosage: 50 MG, UNK
     Route: 048
     Dates: start: 20121129
  2. JANUMET [Suspect]
     Active Substance: METFORMIN HYDROCHLORIDE\SITAGLIPTIN PHOSPHATE
     Indication: TYPE 2 DIABETES MELLITUS
     Dosage: 50/1000 MG, BID
     Route: 048
     Dates: start: 20130115, end: 201410
  3. JANUVIA [Suspect]
     Active Substance: SITAGLIPTIN PHOSPHATE
     Indication: TYPE 2 DIABETES MELLITUS
     Dosage: 100 MG, QD
     Route: 048
     Dates: start: 201006, end: 201306

REACTIONS (20)
  - Renal cyst [Unknown]
  - Pulmonary mass [Unknown]
  - Metastases to lung [Unknown]
  - Hypercholesterolaemia [Unknown]
  - Pulmonary granuloma [Not Recovered/Not Resolved]
  - Pleural effusion [Unknown]
  - Hepatic cyst [Unknown]
  - Death [Fatal]
  - Intervertebral disc degeneration [Unknown]
  - Deep vein thrombosis [Unknown]
  - Haemangioma [Unknown]
  - Renal artery stent placement [Unknown]
  - Arteriosclerosis [Unknown]
  - Metastases to central nervous system [Unknown]
  - Pulmonary embolism [Unknown]
  - Hypertension [Unknown]
  - Pancreatic carcinoma metastatic [Not Recovered/Not Resolved]
  - Metastases to liver [Not Recovered/Not Resolved]
  - Constipation [Unknown]
  - Taeniasis [Unknown]

NARRATIVE: CASE EVENT DATE: 201311
